FAERS Safety Report 18628464 (Version 7)
Quarter: 2023Q2

REPORT INFORMATION
  Report Type: Report from Study
  Country: US (occurrence: US)
  Receive Date: 20201217
  Receipt Date: 20230501
  Transmission Date: 20230722
  Serious: Yes (Hospitalization, Other)
  Sender: FDA-Public Use
  Company Number: US-SHIRE-US202013418

PATIENT
  Sex: Female

DRUGS (1)
  1. HUMAN IMMUNOGLOBULIN G [Suspect]
     Active Substance: HUMAN IMMUNOGLOBULIN G
     Indication: Primary immunodeficiency syndrome
     Dosage: UNK
     Route: 065

REACTIONS (17)
  - Respiratory tract infection bacterial [Unknown]
  - Respiratory failure [Unknown]
  - Dyspnoea [Unknown]
  - Haematochezia [Unknown]
  - Sinus disorder [Unknown]
  - Seasonal allergy [Unknown]
  - Colitis [Unknown]
  - Urinary tract infection [Unknown]
  - Multiple allergies [Unknown]
  - Illness [Unknown]
  - COVID-19 [Not Recovered/Not Resolved]
  - Weight decreased [Unknown]
  - Food allergy [Unknown]
  - Malaise [Unknown]
  - Swollen tongue [Unknown]
  - Inability to afford medication [Unknown]
  - Product dose omission issue [Unknown]
